FAERS Safety Report 5821649-5 (Version None)
Quarter: 2008Q3

REPORT INFORMATION
  Report Type: 
  Country: None (occurrence: None)
  Receive Date: 20080714
  Receipt Date: 20071019
  Transmission Date: 20090109
  Serious: Yes (Other)
  Sender: FDA-Public Use
  Company Number: 526171

PATIENT
  Age: 47 Year
  Sex: Female
  Weight: 92.5 kg

DRUGS (4)
  1. BONIVA [Suspect]
     Indication: OSTEOPENIA
     Dosage: 150 MG 1 PER MONTH ORAL
     Route: 048
     Dates: start: 20070927, end: 20070928
  2. VYTORIN [Concomitant]
  3. SYNTHROID [Concomitant]
  4. WELLBUTRIN [Concomitant]

REACTIONS (2)
  - BACK PAIN [None]
  - BONE PAIN [None]
